FAERS Safety Report 9312913 (Version 1)
Quarter: 2013Q2

REPORT INFORMATION
  Report Type: Spontaneous
  Country: US (occurrence: US)
  Receive Date: 20130528
  Receipt Date: 20130528
  Transmission Date: 20140414
  Serious: No
  Sender: FDA-Public Use
  Company Number: US-ABBOTT-13P-163-1069003-00

PATIENT
  Age: 66 Year
  Sex: Male

DRUGS (1)
  1. ANDROGEL [Suspect]
     Indication: PRODUCT USED FOR UNKNOWN INDICATION
     Dates: start: 20130325, end: 20130325

REACTIONS (5)
  - Erectile dysfunction [Not Recovered/Not Resolved]
  - Wrong drug administered [Recovered/Resolved]
  - Incorrect dose administered [Recovered/Resolved]
  - Drug ineffective [Not Recovered/Not Resolved]
  - Wrong technique in drug usage process [Unknown]
